FAERS Safety Report 4860672-4 (Version None)
Quarter: 2005Q4

REPORT INFORMATION
  Report Type: 
  Country: None (occurrence: None)
  Receive Date: 20051216
  Receipt Date: 20051128
  Transmission Date: 20060501
  Serious: Yes (Hospitalization, Other)
  Sender: FDA-Public Use
  Company Number: US_0508121100

PATIENT
  Age: 42 Year
  Sex: Male
  Weight: 101.4 kg

DRUGS (22)
  1. PROZAC [Suspect]
     Indication: DEPRESSION
     Dosage: 20 MG, DAILY (1/D)
     Dates: start: 19981117, end: 19981124
  2. OLANZAPINE [Suspect]
     Indication: BIPOLAR DISORDER
     Dosage: 20 MG
     Dates: start: 19990101, end: 20031018
  3. DEPAKOTE [Concomitant]
  4. ATIVAN [Concomitant]
  5. METFORMIN HCL [Concomitant]
  6. ANTABUSE [Concomitant]
  7. TOPROL-XL [Concomitant]
  8. AMARYL [Concomitant]
  9. MAXZIDE [Concomitant]
  10. CLONAZEPAM [Concomitant]
  11. PAXIL [Concomitant]
  12. NAPROXEN [Concomitant]
  13. TYLENOL W/ CODEINE NO. 3 [Concomitant]
  14. MEDROL [Concomitant]
  15. VIOXX [Concomitant]
  16. AMITRIPTYLINE (AMITRIPTYLINE) [Concomitant]
  17. PLAVIX [Concomitant]
  18. NORVASC [Concomitant]
  19. ASPIRIN [Concomitant]
  20. LORAZEPAM [Concomitant]
  21. CYCLOBENZAPRINE (CYCLOBENZAPRINE) [Concomitant]
  22. ALDACTONE [Concomitant]

REACTIONS (31)
  - ACUTE MYOCARDIAL INFARCTION [None]
  - AGGRESSION [None]
  - AGITATION [None]
  - ALCOHOLISM [None]
  - BIPOLAR DISORDER [None]
  - BURNING SENSATION [None]
  - CEREBRAL ATROPHY [None]
  - CEREBROVASCULAR ACCIDENT [None]
  - CONDITION AGGRAVATED [None]
  - DEAFNESS [None]
  - DEPRESSION [None]
  - DIABETES MELLITUS [None]
  - DIABETES MELLITUS NON-INSULIN-DEPENDENT [None]
  - DIZZINESS [None]
  - HAEMORRHOIDAL HAEMORRHAGE [None]
  - HALLUCINATION [None]
  - HIGH DENSITY LIPOPROTEIN DECREASED [None]
  - HYDROCEPHALUS [None]
  - HYPERCHOLESTEROLAEMIA [None]
  - INSOMNIA [None]
  - LOW DENSITY LIPOPROTEIN INCREASED [None]
  - MALAISE [None]
  - MANIA [None]
  - OEDEMA PERIPHERAL [None]
  - PERONEAL NERVE PALSY [None]
  - POLYNEUROPATHY [None]
  - SINUS TACHYCARDIA [None]
  - THINKING ABNORMAL [None]
  - TINNITUS [None]
  - TREATMENT NONCOMPLIANCE [None]
  - VOMITING [None]
